FAERS Safety Report 13946461 (Version 1)
Quarter: 2017Q3

REPORT INFORMATION
  Report Type: Spontaneous
  Country: US (occurrence: US)
  Receive Date: 20170907
  Receipt Date: 20170907
  Transmission Date: 20171128
  Serious: Yes (Death)
  Sender: FDA-Public Use
  Company Number: US-TEVA-803681USA

PATIENT
  Sex: Male

DRUGS (1)
  1. ACTIQ [Suspect]
     Active Substance: FENTANYL CITRATE
     Indication: PAIN
     Route: 065

REACTIONS (3)
  - Drug effect decreased [Unknown]
  - Death [Fatal]
  - Cognitive disorder [Unknown]

NARRATIVE: CASE EVENT DATE: 201704
